FAERS Safety Report 10470885 (Version 1)
Quarter: 2014Q3

REPORT INFORMATION
  Report Type: Report from Study
  Country: US (occurrence: US)
  Receive Date: 20140923
  Receipt Date: 20140923
  Transmission Date: 20150326
  Serious: No
  Sender: FDA-Public Use
  Company Number: US-ALEXION-A200700296

PATIENT
  Sex: Female

DRUGS (1)
  1. SOLIRIS [Suspect]
     Active Substance: ECULIZUMAB
     Indication: PAROXYSMAL NOCTURNAL HAEMOGLOBINURIA
     Dosage: UNK
     Route: 042

REACTIONS (12)
  - Euphoric mood [Unknown]
  - Energy increased [Unknown]
  - Rash [Recovered/Resolved]
  - Skin exfoliation [Unknown]
  - Cough [Unknown]
  - Epistaxis [Unknown]
  - Fatigue [Unknown]
  - Palpitations [Unknown]
  - Nausea [Unknown]
  - Dyspnoea [Unknown]
  - Headache [Recovered/Resolved]
  - Vomiting [Recovered/Resolved]
